FAERS Safety Report 7773765-9 (Version None)
Quarter: 2011Q3

REPORT INFORMATION
  Report Type: 
  Country: None (occurrence: None)
  Receive Date: 20110923
  Receipt Date: 20110912
  Transmission Date: 20111222
  Serious: Yes (Other)
  Sender: FDA-Public Use
  Company Number: CA-JNJFOC-20110906047

PATIENT
  Sex: Male
  Weight: 80 kg

DRUGS (6)
  1. RANITIDINE [Concomitant]
     Route: 065
  2. FOLIC ACID [Concomitant]
     Route: 065
  3. NAPROXEN [Concomitant]
     Route: 065
  4. REMICADE [Suspect]
     Indication: CROHN'S DISEASE
     Route: 042
     Dates: start: 20110901
  5. METHOTREXATE [Concomitant]
     Route: 058
  6. NEXIUM [Concomitant]
     Route: 065

REACTIONS (1)
  - PEPTIC ULCER [None]
